FAERS Safety Report 5301532-4 (Version None)
Quarter: 2007Q2

REPORT INFORMATION
  Report Type: 
  Country: None (occurrence: None)
  Receive Date: 20070412
  Receipt Date: 20070328
  Transmission Date: 20071010
  Serious: Yes (Hospitalization)
  Sender: FDA-Public Use
  Company Number: STI-2007-00194

PATIENT
  Age: 17 Year
  Sex: Female

DRUGS (1)
  1. DUAC [Suspect]
     Dosage: (1 IN 1 DAYS)
     Dates: start: 20070207, end: 20070312

REACTIONS (2)
  - HYPERSENSITIVITY [None]
  - WOUND SECRETION [None]
